FAERS Safety Report 17112691 (Version 1)
Quarter: 2019Q4

REPORT INFORMATION
  Report Type: Spontaneous
  Country: US (occurrence: US)
  Receive Date: 20191204
  Receipt Date: 20191204
  Transmission Date: 20200122
  Serious: No
  Sender: FDA-Public Use
  Company Number: US-PTC THERAPEUTICS, INC.-US-2019PTC001369

PATIENT
  Age: 12 Year
  Sex: Male

DRUGS (3)
  1. EMFLAZA [Suspect]
     Active Substance: DEFLAZACORT
     Indication: DUCHENNE MUSCULAR DYSTROPHY
     Dosage: UNK, UNK, UNK
     Route: 048
     Dates: start: 20180609
  2. EMFLAZA [Suspect]
     Active Substance: DEFLAZACORT
     Dosage: 18 MG, QD
     Route: 048
  3. EMFLAZA [Suspect]
     Active Substance: DEFLAZACORT
     Dosage: 36 MG, QD
     Route: 048

REACTIONS (1)
  - Intraocular pressure increased [Unknown]

NARRATIVE: CASE EVENT DATE: 20190920
